FAERS Safety Report 20901391 (Version 3)
Quarter: 2023Q1

REPORT INFORMATION
  Report Type: Spontaneous
  Country: DE (occurrence: DE)
  Receive Date: 20220601
  Receipt Date: 20230306
  Transmission Date: 20230417
  Serious: Yes (Hospitalization, Disabling)
  Sender: FDA-Public Use
  Company Number: DE-NOVARTISPH-NVSC2022DE121683

PATIENT
  Age: 65 Year
  Sex: Female

DRUGS (16)
  1. CARBOPLATIN [Suspect]
     Active Substance: CARBOPLATIN
     Indication: Non-small cell lung cancer
     Dosage: 578 MG
     Route: 042
     Dates: start: 20211118, end: 20211214
  2. YERVOY [Suspect]
     Active Substance: IPILIMUMAB
     Indication: Non-small cell lung cancer
     Dosage: 70 MG, 6 WEEKS
     Route: 042
     Dates: start: 20211118, end: 20221106
  3. OPDIVO [Suspect]
     Active Substance: NIVOLUMAB
     Indication: Non-small cell lung cancer
     Dosage: 360 MG, EVERY 6 WEEKS
     Route: 042
     Dates: start: 20211118, end: 20221106
  4. ONDANSETRON [Concomitant]
     Active Substance: ONDANSETRON
     Indication: Prophylaxis
     Dosage: 8 MG (ONDANSETRON ABZ 8MG 30 FILM TABLETS N3)
     Route: 065
     Dates: start: 20211116, end: 20220106
  5. AMPHO-MORONAL [Concomitant]
     Active Substance: AMPHOTERICIN B
     Indication: Prophylaxis
     Dosage: UNK (AMPHO-MORONAL SUSPENSION, 100 MG/ML 50ML N2)
     Route: 065
     Dates: start: 20211214, end: 20220112
  6. SALIVA NATURA [Concomitant]
     Indication: Prophylaxis
     Dosage: 250 ML (MOUTH SPRAY 250ML PUMPSPRAY )
     Route: 065
     Dates: start: 20211215, end: 20220222
  7. TETRACAINE HYDROCHLORIDE [Concomitant]
     Active Substance: TETRACAINE HYDROCHLORIDE
     Indication: Prophylaxis
     Dosage: UNK
     Route: 065
     Dates: start: 20211214
  8. GRANI DENK [Concomitant]
     Indication: Prophylaxis
     Dosage: UNK (K 1 MG/ML CONCENTRATE FOR SOLUTION FOR INJECTION OR INFUSION 5X1 MLN2 PZN:10943671)
     Route: 065
     Dates: start: 20211118, end: 20211214
  9. GLANDOMED [Concomitant]
     Indication: Prophylaxis
     Dosage: 500 ML
     Route: 065
     Dates: start: 20211214, end: 20220122
  10. PAMIDRONATE DISODIUM [Concomitant]
     Active Substance: PAMIDRONATE DISODIUM
     Indication: Product used for unknown indication
     Dosage: UNK (3 MG/ML 60 MG CONCENTRATE FOR SOLUTION FOR INFUSION 1 ST N1 )
     Route: 065
     Dates: start: 20211125
  11. DEXAMETHASONE [Concomitant]
     Active Substance: DEXAMETHASONE
     Indication: Product used for unknown indication
     Dosage: 4 MG
     Route: 065
     Dates: start: 20220114, end: 20220208
  12. PREDNISOLONE [Concomitant]
     Active Substance: PREDNISOLONE
     Indication: Product used for unknown indication
     Dosage: 20 MG
     Route: 065
     Dates: start: 20220411, end: 20220509
  13. PREDNISOLONE [Concomitant]
     Active Substance: PREDNISOLONE
     Dosage: 10 MG
     Route: 065
     Dates: start: 20220509
  14. LEVOTHYROXINE [Concomitant]
     Active Substance: LEVOTHYROXINE
     Indication: Product used for unknown indication
     Dosage: UNK
     Route: 065
     Dates: start: 20220510
  15. MCP [Concomitant]
     Active Substance: METOCLOPRAMIDE HYDROCHLORIDE
     Indication: Prophylaxis
     Dosage: 10 MG (MCP - 1 A PHARMA 10MG 100 TABL. N3)
     Route: 065
     Dates: start: 20211116, end: 20220115
  16. PANTOPRAZOLE SODIUM [Concomitant]
     Active Substance: PANTOPRAZOLE SODIUM
     Indication: Prophylaxis
     Dosage: 40 MG
     Route: 065
     Dates: start: 20220127, end: 20220331

REACTIONS (2)
  - Dysphagia [Unknown]
  - Off label use [Unknown]

NARRATIVE: CASE EVENT DATE: 20220401
